FAERS Safety Report 7201415-9 (Version None)
Quarter: 2010Q4

REPORT INFORMATION
  Report Type: 
  Country: None (occurrence: None)
  Receive Date: 20101229
  Receipt Date: 20101221
  Transmission Date: 20110411
  Serious: Yes (Other)
  Sender: FDA-Public Use
  Company Number: JP-ASTELLAS-2010JP007589

PATIENT
  Age: 9 Year
  Sex: Female

DRUGS (26)
  1. PROGRAF [Suspect]
     Indication: PROPHYLAXIS AGAINST GRAFT VERSUS HOST DISEASE
     Route: 065
  2. L-PAM [Concomitant]
     Indication: BONE MARROW CONDITIONING REGIMEN
     Route: 065
  3. ANTI-THYMOCYTE GLOBULIN NOS [Concomitant]
     Indication: BONE MARROW CONDITIONING REGIMEN
     Route: 065
  4. METHOTREXATE [Concomitant]
     Indication: PROPHYLAXIS AGAINST GRAFT VERSUS HOST DISEASE
     Route: 065
  5. VP-16 [Concomitant]
     Indication: ACUTE MYELOID LEUKAEMIA
     Route: 065
  6. VP-16 [Concomitant]
     Route: 065
  7. ARA-C [Concomitant]
     Indication: ACUTE MYELOID LEUKAEMIA
     Route: 065
  8. ARA-C [Concomitant]
     Route: 065
  9. ARA-C [Concomitant]
     Route: 065
  10. ARA-C [Concomitant]
     Route: 065
  11. ARA-C [Concomitant]
     Route: 065
  12. ARA-C [Concomitant]
     Route: 065
  13. MITOXANTRONE [Concomitant]
     Indication: ACUTE MYELOID LEUKAEMIA
     Route: 065
  14. IDARUBICIN HCL [Concomitant]
     Indication: ACUTE MYELOID LEUKAEMIA
     Route: 065
  15. IDARUBICIN HCL [Concomitant]
     Route: 065
  16. IDARUBICIN HCL [Concomitant]
     Route: 065
  17. IDARUBICIN HCL [Concomitant]
     Route: 065
  18. IDARUBICIN HCL [Concomitant]
     Route: 065
  19. FLUDARABINE PHOSPHATE [Concomitant]
     Indication: ACUTE MYELOID LEUKAEMIA
     Route: 065
  20. FLUDARABINE PHOSPHATE [Concomitant]
     Route: 065
  21. FLUDARABINE PHOSPHATE [Concomitant]
     Route: 065
  22. FLUDARABINE PHOSPHATE [Concomitant]
     Route: 065
  23. GEMTUZUMAB OZOGAMICIN [Concomitant]
     Indication: ACUTE MYELOID LEUKAEMIA
     Route: 065
  24. NEUPOGEN [Concomitant]
     Indication: ACUTE MYELOID LEUKAEMIA
     Route: 065
  25. NEUPOGEN [Concomitant]
     Route: 065
  26. NEUPOGEN [Concomitant]
     Route: 065

REACTIONS (2)
  - HEPATIC VEIN OCCLUSION [None]
  - THROMBOTIC MICROANGIOPATHY [None]
